FAERS Safety Report 8889523 (Version 2)
Quarter: 2012Q4

REPORT INFORMATION
  Report Type: 
  Country: BR (occurrence: BR)
  Receive Date: 20121107
  Receipt Date: 20121212
  Transmission Date: 20130627
  Serious: Yes (Other)
  Sender: FDA-Public Use
  Company Number: PHHY2012BR101129

PATIENT
  Age: 59 Year
  Sex: Female

DRUGS (4)
  1. AMINOPHYLLINE [Suspect]
     Indication: ASTHMA
     Dosage: UNK UKN, UNK
  2. AMINOPHYLLINE [Suspect]
     Dosage: one tablet each 6 hours
  3. SERETIDE [Concomitant]
     Indication: ASTHMA
     Dosage: 2 DF, a day
  4. AEROLIN [Concomitant]
     Indication: ASTHMA
     Dosage: Every day that she presents with breathlessness

REACTIONS (9)
  - Diabetes mellitus [Not Recovered/Not Resolved]
  - Asthma [Not Recovered/Not Resolved]
  - Dyspnoea [Not Recovered/Not Resolved]
  - Blood cholesterol increased [Not Recovered/Not Resolved]
  - Blood uric acid increased [Not Recovered/Not Resolved]
  - Memory impairment [Not Recovered/Not Resolved]
  - Head discomfort [Not Recovered/Not Resolved]
  - Fibrosis [Not Recovered/Not Resolved]
  - Feeling of despair [Unknown]
